FAERS Safety Report 18585540 (Version 1)
Quarter: 2020Q4

REPORT INFORMATION
  Report Type: Spontaneous
  Country: US (occurrence: US)
  Receive Date: 20201205
  Receipt Date: 20201205
  Transmission Date: 20210114
  Serious: Yes (Disabling)
  Sender: FDA-Public Use
  Company Number: None

PATIENT
  Age: 62 Year
  Sex: Male
  Weight: 103.5 kg

DRUGS (9)
  1. ASPIRIN. [Concomitant]
     Active Substance: ASPIRIN
  2. TESTOSTERONE GEL 1.62% [Suspect]
     Active Substance: TESTOSTERONE
     Indication: BLOOD TESTOSTERONE DECREASED
     Dosage: ?          QUANTITY:1 PUMPS;?
     Route: 061
  3. SIMVASTATIN. [Concomitant]
     Active Substance: SIMVASTATIN
  4. AZELASTINE. [Concomitant]
     Active Substance: AZELASTINE HYDROCHLORIDE
  5. FLUTICASONE PROP [Concomitant]
     Active Substance: FLUTICASONE PROPIONATE
  6. ANDROGEL [Concomitant]
     Active Substance: TESTOSTERONE
  7. VITAMIN C [Concomitant]
     Active Substance: ASCORBIC ACID
  8. MULTI-VITAMIN [Concomitant]
     Active Substance: .ALPHA.-TOCOPHEROL ACETATE, DL-\ASCORBIC ACID\CYANOCOBALAMIN\FLUORIDE ION\FOLIC ACID\NIACIN\PYRIDOXINE\RIBOFLAVIN\THIAMINE\VITAMIN A\VITAMIN D
  9. GLUCOSAMINE HCL + MSM [Concomitant]

REACTIONS (2)
  - Blood testosterone decreased [None]
  - Product substitution issue [None]

NARRATIVE: CASE EVENT DATE: 20201116
